FAERS Safety Report 4880611-X (Version None)
Quarter: 2005Q4

REPORT INFORMATION
  Report Type: 
  Country: None (occurrence: None)
  Receive Date: 20051223
  Receipt Date: 20051122
  Transmission Date: 20060501
  Serious: No
  Sender: FDA-Public Use
  Company Number: 05P-163-0317806-00

PATIENT
  Age: 38 Year
  Sex: Female
  Weight: 52.6173 kg

DRUGS (4)
  1. HUMIRA [Suspect]
     Indication: RHEUMATOID ARTHRITIS
     Dosage: 40 MG, 1 IN 2 WK, SUBCUTANEOUS
     Route: 058
     Dates: start: 20050501
  2. METHOTREXATE [Concomitant]
  3. HYDROXYCHLOROQUINE PHOSPHATE [Concomitant]
  4. MELOXICAM [Concomitant]

REACTIONS (4)
  - ASTHENIA [None]
  - DIZZINESS [None]
  - PARAESTHESIA [None]
  - VISION BLURRED [None]
